FAERS Safety Report 13378919 (Version 1)
Quarter: 2017Q1

REPORT INFORMATION
  Report Type: Spontaneous
  Country: CH (occurrence: CH)
  Receive Date: 20170328
  Receipt Date: 20170328
  Transmission Date: 20170429
  Serious: Yes (Other)
  Sender: FDA-Public Use
  Company Number: CH-OTSUKA-2016_026351

PATIENT
  Sex: Female

DRUGS (1)
  1. ABILIFY MAINTENA [Suspect]
     Active Substance: ARIPIPRAZOLE
     Indication: BIPOLAR DISORDER
     Dosage: 400 MG, QM
     Route: 051
     Dates: start: 201605

REACTIONS (21)
  - Headache [Unknown]
  - Abdominal pain upper [Unknown]
  - Alopecia [Unknown]
  - Arrhythmia [Unknown]
  - Suicidal ideation [Unknown]
  - Injection site pain [Unknown]
  - Somnolence [Unknown]
  - Anxiety [Unknown]
  - Myalgia [Unknown]
  - Dizziness [Unknown]
  - Weight increased [Unknown]
  - Lethargy [Unknown]
  - Restlessness [Unknown]
  - Tremor [Unknown]
  - Diarrhoea [Unknown]
  - Constipation [Unknown]
  - Pollakiuria [Unknown]
  - Arthralgia [Unknown]
  - Feeling abnormal [Unknown]
  - Fatigue [Unknown]
  - Sleep disorder [Unknown]
